FAERS Safety Report 11374438 (Version 1)
Quarter: 2015Q3

REPORT INFORMATION
  Report Type: Spontaneous
  Country: KR (occurrence: KR)
  Receive Date: 20150813
  Receipt Date: 20150813
  Transmission Date: 20151125
  Serious: Yes (Hospitalization)
  Sender: FDA-Public Use
  Company Number: KR-AMGEN-KORCT2015081724

PATIENT
  Age: 75 Year
  Sex: Male
  Weight: 66.5 kg

DRUGS (8)
  1. G-LASTA [Suspect]
     Active Substance: PEGFILGRASTIM
     Indication: FEBRILE NEUTROPENIA
     Dosage: 6 MG, 1X/3WEEKS
     Route: 058
     Dates: start: 20150522
  2. IFOSFAMIDE. [Concomitant]
     Active Substance: IFOSFAMIDE
     Dosage: 6.45 G, UNK
     Route: 042
     Dates: start: 20150617, end: 20150617
  3. CARBOPLATIN. [Concomitant]
     Active Substance: CARBOPLATIN
     Dosage: 313.9 MG, UNK
     Route: 042
     Dates: start: 20150617, end: 20150617
  4. CARBOPLATIN. [Concomitant]
     Active Substance: CARBOPLATIN
     Dosage: 298 MG, UNK
     Route: 042
     Dates: start: 20150520, end: 20150520
  5. ETOPOSIDE. [Concomitant]
     Active Substance: ETOPOSIDE
     Dosage: 129 MG, UNK
     Route: 042
     Dates: start: 20150520, end: 20150520
  6. G-LASTA [Suspect]
     Active Substance: PEGFILGRASTIM
     Dosage: 6 MG, 1X/3WEEKS
     Route: 058
     Dates: start: 20150619
  7. IFOSFAMIDE. [Concomitant]
     Active Substance: IFOSFAMIDE
     Dosage: 6.4 G, UNK
     Route: 042
     Dates: start: 20150520, end: 20150520
  8. ETOPOSIDE. [Concomitant]
     Active Substance: ETOPOSIDE
     Dosage: 129 MG, UNK
     Route: 042
     Dates: start: 20150617, end: 20150617

REACTIONS (1)
  - Neutropenia [Recovered/Resolved]

NARRATIVE: CASE EVENT DATE: 20150728
